FAERS Safety Report 23205670 (Version 2)
Quarter: 2024Q1

REPORT INFORMATION
  Report Type: Report from Study
  Country: NL (occurrence: NL)
  Receive Date: 20231120
  Receipt Date: 20240117
  Transmission Date: 20240410
  Serious: Yes (Other)
  Sender: FDA-Public Use
  Company Number: NL-GILEAD-2023-0651761

PATIENT
  Sex: Female

DRUGS (1)
  1. SACITUZUMAB GOVITECAN-HZIY [Suspect]
     Active Substance: SACITUZUMAB GOVITECAN-HZIY
     Indication: Breast cancer metastatic
     Dosage: UNK
     Route: 065
     Dates: end: 20231116

REACTIONS (1)
  - Disease progression [Unknown]
